FAERS Safety Report 24687771 (Version 2)
Quarter: 2024Q4

REPORT INFORMATION
  Report Type: Report from Study
  Country: CA (occurrence: CA)
  Receive Date: 20241202
  Receipt Date: 20241217
  Transmission Date: 20250114
  Serious: Yes (Hospitalization, Other)
  Sender: HLS THERAPEUTICS
  Company Number: CA-HLS-202402892

PATIENT
  Age: 77 Year
  Sex: Female
  Weight: 42 kg

DRUGS (17)
  1. CLOZARIL [Suspect]
     Active Substance: CLOZAPINE
     Indication: Hallucination
     Dosage: 25 MG 1 TIME PER DAY AT BEDTIME, 12.5 MG1 TIME PER DAY IN THE MORNING
     Route: 048
     Dates: start: 20240426
  2. CLOZARIL [Suspect]
     Active Substance: CLOZAPINE
     Indication: Dementia with Lewy bodies
     Dosage: 25 MG 1 TIME PER DAY AT BEDTIME, 12.5 MG1 TIME PER DAY IN THE MORNING
     Route: 048
     Dates: start: 20240426
  3. SCOPOLAMINE [Concomitant]
     Active Substance: SCOPOLAMINE
     Indication: Product used for unknown indication
     Dosage: 0.4 MG/1ML FOR 1 DOSE IF RESPIRATORY DISTRESS WITH MIDAZOLAM AND MORPHINE OR DILAUDID
     Route: 058
     Dates: start: 20240810
  4. DIETARY SUPPLEMENT [Concomitant]
     Active Substance: DIETARY SUPPLEMENT
     Indication: Product used for unknown indication
     Dosage: 4 TIMES PER DAY,
     Route: 048
     Dates: start: 20240606
  5. SENOKOT [Concomitant]
     Active Substance: SENNOSIDES
     Indication: Product used for unknown indication
     Dosage: EVERY 2 DAYS
     Route: 065
     Dates: start: 20241122
  6. Exelon timbre [Concomitant]
     Indication: Product used for unknown indication
     Dosage: SKIN PATCH.
     Route: 065
     Dates: start: 20240427
  7. Lax-a-day/relaxa [Concomitant]
     Indication: Product used for unknown indication
     Dosage: ONCE A DAY
     Route: 048
     Dates: start: 20240426
  8. DOLORAL [Concomitant]
     Indication: Product used for unknown indication
     Dosage: 1 MG/ML EVERY 4 HOURS IF PAIN
     Route: 048
     Dates: start: 20240810
  9. DOLORAL [Concomitant]
     Indication: Product used for unknown indication
     Dosage: 1MG/ML TWICE A DAY
     Route: 048
     Dates: start: 20240810
  10. Remeron eq. [Concomitant]
     Indication: Product used for unknown indication
     Dosage: ONCE A DAY AT BEDTIME.
     Route: 065
     Dates: start: 20240724
  11. SYNTHROID [Concomitant]
     Active Substance: LEVOTHYROXINE SODIUM
     Indication: Product used for unknown indication
     Dosage: IF UNDER FORCE-FEEDING-STOP 1 H BEFORE AND AFTER WITH 1 TABLET OF 50 MCG.?TOTAL DOSE: 62.5 MCG.
     Route: 048
  12. SYNTHROID [Concomitant]
     Active Substance: LEVOTHYROXINE SODIUM
     Indication: Product used for unknown indication
     Dosage: IF UNDER FORCE-FEEDING-STOP 1 H BEFORE AND AFTER WITH 1/2 A TABLET OF 25 MCG.?TOTAL DOSE: 62.5 MCG.
     Route: 048
     Dates: start: 20240703
  13. Cosopt eq. [Concomitant]
     Indication: Product used for unknown indication
     Route: 065
     Dates: start: 20240427
  14. DICLOFENAC DIETHYLAMINE [Concomitant]
     Active Substance: DICLOFENAC DIETHYLAMINE
     Indication: Product used for unknown indication
     Dosage: 4 TIMES PER DAY IF PAIN ELSEWHERE
     Route: 061
     Dates: start: 20240810
  15. DEXILANT [Concomitant]
     Active Substance: DEXLANSOPRAZOLE
     Indication: Product used for unknown indication
     Route: 048
     Dates: start: 20240426
  16. Dulcolax [Concomitant]
     Indication: Product used for unknown indication
     Dosage: AS NEEDED IF 3 DAYS WITHOUT A BOWEL MOVEMENT
     Route: 065
     Dates: start: 20240904
  17. MORPHINE [Concomitant]
     Active Substance: MORPHINE
     Dosage: 5MG/0.5 ML?EVERY 15 MINUTES IF RESPIRATORY DISTRESS ?WITH MIDAZOLAM
     Route: 058
     Dates: start: 20240810

REACTIONS (8)
  - Off label use [Unknown]
  - Dysphagia [Not Recovered/Not Resolved]
  - Fall [Not Recovered/Not Resolved]
  - General physical health deterioration [Not Recovered/Not Resolved]
  - Dementia [Not Recovered/Not Resolved]
  - Mobility decreased [Not Recovered/Not Resolved]
  - Asthenia [Not Recovered/Not Resolved]
  - Decreased appetite [Not Recovered/Not Resolved]

NARRATIVE: CASE EVENT DATE: 20240801
